FAERS Safety Report 7670008-1 (Version None)
Quarter: 2011Q3

REPORT INFORMATION
  Report Type: 
  Country: None (occurrence: None)
  Receive Date: 20110808
  Receipt Date: 20110803
  Transmission Date: 20111222
  Serious: Yes (Other)
  Sender: FDA-Public Use
  Company Number: GB-PFIZER INC-2011177221

PATIENT
  Age: 55 Year
  Sex: Male

DRUGS (2)
  1. METFORMIN [Concomitant]
  2. LYRICA [Suspect]
     Dosage: 50 MG, 2X/DAY

REACTIONS (1)
  - HYPERGLYCAEMIA [None]
